FAERS Safety Report 13710861 (Version 3)
Quarter: 2018Q2

REPORT INFORMATION
  Report Type: Report from Study
  Country: None (occurrence: BR)
  Receive Date: 20170703
  Receipt Date: 20180423
  Transmission Date: 20180711
  Serious: Yes (Other)
  Sender: FDA-Public Use
  Company Number: BR-ABBVIE-17K-020-1939529-00

PATIENT
  Age: 61 Year
  Sex: Female
  Weight: 65 kg

DRUGS (16)
  1. HUMIRA [Suspect]
     Active Substance: ADALIMUMAB
     Indication: CROHN^S DISEASE
     Dosage: WEEK 0
     Route: 058
     Dates: start: 20150709, end: 20150709
  2. HUMIRA [Suspect]
     Active Substance: ADALIMUMAB
     Dosage: WEEK 2
     Route: 058
     Dates: start: 201507, end: 201507
  3. HUMIRA [Suspect]
     Active Substance: ADALIMUMAB
     Dosage: LOADING DOSE - WEEK 0
     Route: 058
     Dates: start: 20170310, end: 20170310
  4. VARICOSS [Concomitant]
     Indication: PAIN IN EXTREMITY
     Dosage: 2 OR 3 TABLETS PER DAY
     Route: 048
     Dates: start: 2015
  5. HUMIRA [Suspect]
     Active Substance: ADALIMUMAB
     Route: 058
  6. OMEGA 3 [Suspect]
     Active Substance: OMEGA-3 FATTY ACIDS
     Indication: PRODUCT USED FOR UNKNOWN INDICATION
     Route: 065
     Dates: end: 20170328
  7. RIVOTRIL [Concomitant]
     Active Substance: CLONAZEPAM
     Indication: ANXIETY
  8. VICOG [Concomitant]
     Active Substance: VINPOCETINE
     Indication: AMNESIA
     Route: 048
     Dates: start: 2015
  9. HUMIRA [Suspect]
     Active Substance: ADALIMUMAB
     Route: 058
     Dates: start: 2015, end: 201508
  10. LABIRIN [Concomitant]
     Active Substance: BETAHISTINE
     Indication: LABYRINTHITIS
     Dosage: 1 OR 2 TABLETS PER DAY.
     Route: 048
     Dates: start: 2014
  11. DORALGEX [Concomitant]
     Indication: HEADACHE
  12. VARICOSS [Concomitant]
     Indication: CARDIOVASCULAR DISORDER
  13. MESALAZINE [Concomitant]
     Active Substance: MESALAMINE
     Indication: CROHN^S DISEASE
     Route: 048
  14. HUMIRA [Suspect]
     Active Substance: ADALIMUMAB
     Dosage: LOADING DOSE - WEEK 2
     Route: 058
  15. MESALAZINE [Concomitant]
     Active Substance: MESALAMINE
     Indication: COLITIS
  16. RIVOTRIL [Concomitant]
     Active Substance: CLONAZEPAM
     Indication: INSOMNIA
     Route: 048

REACTIONS (27)
  - Malaise [Unknown]
  - Musculoskeletal stiffness [Unknown]
  - Inflammation of wound [Unknown]
  - Anorectal disorder [Recovering/Resolving]
  - Osteoarthritis [Not Recovered/Not Resolved]
  - Gastrointestinal inflammation [Recovered/Resolved]
  - Procedural pain [Recovering/Resolving]
  - Oedema [Unknown]
  - Intestinal haemorrhage [Recovered/Resolved]
  - Frequent bowel movements [Unknown]
  - Weight increased [Unknown]
  - Abdominal distension [Unknown]
  - Abdominal pain [Recovering/Resolving]
  - Diarrhoea haemorrhagic [Recovered/Resolved]
  - Drug ineffective [Unknown]
  - Gastrointestinal inflammation [Not Recovered/Not Resolved]
  - Spinal pain [Recovered/Resolved]
  - Proctitis [Unknown]
  - Anogenital dysplasia [Unknown]
  - Cryptitis [Not Recovered/Not Resolved]
  - Crohn^s disease [Unknown]
  - Colitis ulcerative [Unknown]
  - Drug intolerance [Unknown]
  - Fibromyalgia [Not Recovered/Not Resolved]
  - Diarrhoea [Recovered/Resolved]
  - Retching [Recovered/Resolved]
  - Weight decreased [Not Recovered/Not Resolved]

NARRATIVE: CASE EVENT DATE: 201701
